FAERS Safety Report 13084849 (Version 1)
Quarter: 2017Q1

REPORT INFORMATION
  Report Type: Spontaneous
  Country: GB (occurrence: GB)
  Receive Date: 20170104
  Receipt Date: 20170104
  Transmission Date: 20170428
  Serious: Yes (Other)
  Sender: FDA-Public Use
  Company Number: GB-BAYER-2017-001505

PATIENT

DRUGS (1)
  1. JAYDESS [Suspect]
     Active Substance: LEVONORGESTREL
     Indication: CONTRACEPTION
     Dosage: DAILY DOSE 14 ?G
     Route: 064
     Dates: start: 201508

REACTIONS (2)
  - Foetal exposure during pregnancy [None]
  - Foetal growth abnormality [None]

NARRATIVE: CASE EVENT DATE: 2016
